FAERS Safety Report 10705326 (Version 1)
Quarter: 2015Q1

REPORT INFORMATION
  Report Type: Spontaneous
  Country: US (occurrence: US)
  Receive Date: 20150112
  Receipt Date: 20150112
  Transmission Date: 20150721
  Serious: No
  Sender: FDA-Public Use
  Company Number: US-009507513-1412USA001355

PATIENT
  Sex: Female

DRUGS (9)
  1. VICTRELIS [Suspect]
     Active Substance: BOCEPREVIR
     Indication: CHRONIC HEPATITIS C
     Dosage: 800 MG, TID
     Route: 048
     Dates: start: 20110916
  2. VICTRELIS [Suspect]
     Active Substance: BOCEPREVIR
     Dosage: 600 MG, QD
     Route: 048
  3. PEGASYS [Suspect]
     Active Substance: PEGINTERFERON ALFA-2A
     Dosage: 135 MICROGRAM, QW
     Route: 058
  4. PEGASYS [Suspect]
     Active Substance: PEGINTERFERON ALFA-2A
     Dosage: 90 MICROGRAM, QW
     Route: 058
  5. PEGASYS [Suspect]
     Active Substance: PEGINTERFERON ALFA-2A
     Indication: CHRONIC HEPATITIS C
     Dosage: 180 MICROGRAM, QW
     Route: 058
     Dates: start: 20110819
  6. VICTRELIS [Suspect]
     Active Substance: BOCEPREVIR
     Dosage: 1200 MG, QD
     Route: 048
  7. COPEGUS [Suspect]
     Active Substance: RIBAVIRIN
     Indication: CHRONIC HEPATITIS C
     Dosage: 1000 MG, QD IN DIVIDED DOSES 600/400
     Route: 048
     Dates: start: 20110819
  8. VICTRELIS [Suspect]
     Active Substance: BOCEPREVIR
     Dosage: 1800 MG, QD
     Route: 048
  9. PEGASYS [Suspect]
     Active Substance: PEGINTERFERON ALFA-2A
     Dosage: 45 MICROGRAM, UNK
     Route: 058

REACTIONS (4)
  - White blood cell count decreased [Unknown]
  - Vaginal haemorrhage [Unknown]
  - Headache [Unknown]
  - Anaemia [Unknown]
